FAERS Safety Report 6607673-3 (Version None)
Quarter: 2010Q1

REPORT INFORMATION
  Report Type: 
  Country: None (occurrence: None)
  Receive Date: 20100212
  Receipt Date: 20100111
  Transmission Date: 20100710
  Serious: No
  Sender: FDA-Public Use
  Company Number: 1000011224

PATIENT
  Age: 64 Year
  Sex: Female

DRUGS (7)
  1. SAVELLA [Suspect]
     Indication: FIBROMYALGIA
     Dosage: 12.5 MG (12.5 MG, 1 IN 1 D), ORAL; SEE IMAGE
     Route: 048
     Dates: start: 20091101, end: 20091101
  2. SAVELLA [Suspect]
     Indication: FIBROMYALGIA
     Dosage: 12.5 MG (12.5 MG, 1 IN 1 D), ORAL; SEE IMAGE
     Route: 048
     Dates: start: 20091101, end: 20091101
  3. SAVELLA [Suspect]
     Indication: FIBROMYALGIA
     Dosage: 100 MG (50 MG, 2 IN 1 D), ORAL
     Route: 048
     Dates: start: 20091101, end: 20100109
  4. METHADONE HYDROCHLORIDE [Concomitant]
  5. PAXIL [Concomitant]
  6. XANAX [Concomitant]
  7. TRAZODONE HCL [Concomitant]

REACTIONS (4)
  - DECREASED APPETITE [None]
  - FEELING JITTERY [None]
  - HOT FLUSH [None]
  - PALPITATIONS [None]
